FAERS Safety Report 22206234 (Version 5)
Quarter: 2025Q3

REPORT INFORMATION
  Report Type: Report from Study
  Country: CA (occurrence: CA)
  Receive Date: 20230413
  Receipt Date: 20250923
  Transmission Date: 20251020
  Serious: Yes (Other)
  Sender: TAKEDA
  Company Number: CA-TAKEDA-2022TUS018317

PATIENT
  Sex: Female
  Weight: 62.5 kg

DRUGS (7)
  1. VEDOLIZUMAB [Suspect]
     Active Substance: VEDOLIZUMAB
     Indication: Crohn^s disease
  2. VEDOLIZUMAB [Suspect]
     Active Substance: VEDOLIZUMAB
  3. VEDOLIZUMAB [Suspect]
     Active Substance: VEDOLIZUMAB
  4. VEDOLIZUMAB [Suspect]
     Active Substance: VEDOLIZUMAB
  5. VEDOLIZUMAB [Suspect]
     Active Substance: VEDOLIZUMAB
  6. IMURAN [Concomitant]
     Active Substance: AZATHIOPRINE
  7. PROLIA [Concomitant]
     Active Substance: DENOSUMAB
     Indication: Osteoporosis
     Dosage: UNK UNK, Q6MONTHS

REACTIONS (9)
  - Crohn^s disease [Recovered/Resolved]
  - Drug effect less than expected [Unknown]
  - Product dose omission issue [Unknown]
  - Splenic lesion [Unknown]
  - Osteoporosis [Unknown]
  - Vitamin B12 decreased [Unknown]
  - Hepatic steatosis [Unknown]
  - Haemangioma of spleen [Unknown]
  - Arthralgia [Unknown]
